FAERS Safety Report 18479260 (Version 1)
Quarter: 2020Q4

REPORT INFORMATION
  Report Type: Spontaneous
  Country: US (occurrence: US)
  Receive Date: 20201106
  Receipt Date: 20201106
  Transmission Date: 20210114
  Serious: Yes (Other)
  Sender: FDA-Public Use
  Company Number: None

PATIENT
  Age: 69 Year
  Sex: Female
  Weight: 107.05 kg

DRUGS (5)
  1. HEALON [Suspect]
     Active Substance: HYALURONATE SODIUM
     Indication: CATARACT OPERATION
  2. BSS IRRIGATION [Concomitant]
     Dates: start: 20200925
  3. PROLYSTICA [Concomitant]
     Dates: start: 20200925
  4. QUICK RINSE [Concomitant]
     Dates: start: 20200925
  5. LIDOCAINE PRESERVATIVE FREE [Suspect]
     Active Substance: LIDOCAINE
     Indication: ANAESTHESIA
     Route: 031

REACTIONS (1)
  - Toxic anterior segment syndrome [None]

NARRATIVE: CASE EVENT DATE: 20200926
